FAERS Safety Report 13668001 (Version 1)
Quarter: 2017Q2

REPORT INFORMATION
  Report Type: Spontaneous
  Country: US (occurrence: US)
  Receive Date: 20170620
  Receipt Date: 20170620
  Transmission Date: 20170830
  Serious: Yes (Hospitalization, Other)
  Sender: FDA-Public Use
  Company Number: US-DRREDDYS-USA/USA/17/0091555

PATIENT
  Age: 75 Year
  Sex: Female

DRUGS (4)
  1. ALLOPURINOL. [Suspect]
     Active Substance: ALLOPURINOL
     Indication: PROPHYLAXIS
     Route: 065
  2. DEXAMETHASONE. [Concomitant]
     Active Substance: DEXAMETHASONE
     Indication: PROPHYLAXIS
     Route: 065
  3. RITUXIMAB [Suspect]
     Active Substance: RITUXIMAB
     Indication: LEUKAEMIA
     Dosage: 375 MG/M2 ON DAY 1 ON 28 DAY CYCLE FOR 6 CYCLES
     Route: 065
  4. BENDAMUSTINE [Suspect]
     Active Substance: BENDAMUSTINE
     Indication: LEUKAEMIA
     Dosage: 70MG/M2 ON DAYS 1 AND 2 ON 28 DAY CYCLE FOR 6 CYCLES
     Route: 065

REACTIONS (9)
  - Gastrointestinal haemorrhage [Unknown]
  - Dyspnoea [Recovering/Resolving]
  - Thrombocytopenia [Unknown]
  - Asthenia [Unknown]
  - Anaemia [Unknown]
  - Rash pruritic [Unknown]
  - Vasculitis [Unknown]
  - Cough [Recovering/Resolving]
  - Petechiae [Unknown]
